FAERS Safety Report 21467140 (Version 1)
Quarter: 2022Q4

REPORT INFORMATION
  Report Type: Spontaneous
  Country: TR (occurrence: TR)
  Receive Date: 20221017
  Receipt Date: 20221017
  Transmission Date: 20230113
  Serious: Yes (Life-Threatening, Other)
  Sender: FDA-Public Use
  Company Number: TR-NOVARTISPH-NVSC2022TR233283

PATIENT
  Age: 7 Year

DRUGS (3)
  1. CYCLOSPORINE [Suspect]
     Active Substance: CYCLOSPORINE
     Indication: Aplastic anaemia
     Dosage: UNK (SOMETIMES 0.80 OF SANDIMMUN NEORAL 100 WAS GIVEN, SOMETIME IT WAS GIVEN COMPLETELY,)
     Route: 065
  2. CYCLOSPORINE [Suspect]
     Active Substance: CYCLOSPORINE
     Indication: Aplastic anaemia
     Dosage: UNK
     Route: 065
  3. CYCLOSPORINE [Suspect]
     Active Substance: CYCLOSPORINE

REACTIONS (6)
  - Coma [Unknown]
  - Feeling abnormal [Unknown]
  - Platelet count increased [Unknown]
  - Drug hypersensitivity [Unknown]
  - Product physical issue [Unknown]
  - Off label use [Unknown]
